FAERS Safety Report 8613463-2 (Version None)
Quarter: 2012Q3

REPORT INFORMATION
  Report Type: 
  Country: None (occurrence: None)
  Receive Date: 20120823
  Receipt Date: 20120809
  Transmission Date: 20120928
  Serious: Yes (Hospitalization)
  Sender: FDA-Public Use
  Company Number: FR-MYLANLABS-2012S1016357

PATIENT
  Age: 57 Year
  Sex: Female

DRUGS (8)
  1. TEGRETOL [Concomitant]
  2. DEPAKENE [Concomitant]
  3. VANCOMYCIN [Suspect]
     Indication: INFECTION
     Dates: start: 20110711, end: 20110719
  4. ASPIRIN [Concomitant]
  5. BISOPROLOL FUMARATE [Concomitant]
  6. CALCIPARINE [Concomitant]
  7. CIPROFLOXACIN HYDROCHLORIDE [Suspect]
     Indication: INFECTION
     Dates: start: 20110711, end: 20110719
  8. LEVOTHYROXINE SODIUM [Concomitant]

REACTIONS (4)
  - SHOCK [None]
  - RASH PRURITIC [None]
  - HYPOKALAEMIA [None]
  - RENAL FAILURE ACUTE [None]
